FAERS Safety Report 16531895 (Version 1)
Quarter: 2019Q3

REPORT INFORMATION
  Report Type: Spontaneous
  Country: US (occurrence: US)
  Receive Date: 20190523
  Receipt Date: 20190523
  Transmission Date: 20191004
  Serious: No
  Sender: FDA-Public Use
  Company Number: None

PATIENT
  Age: 57 Year
  Sex: Female
  Weight: 127.01 kg

DRUGS (20)
  1. NEXIUM [Concomitant]
     Active Substance: ESOMEPRAZOLE MAGNESIUM
  2. BI-PAP [Concomitant]
     Active Substance: DEVICE
  3. HUMALOG [Concomitant]
     Active Substance: INSULIN LISPRO
  4. METOLOZONE [Concomitant]
  5. RECLAST [Suspect]
     Active Substance: ZOLEDRONIC ACID
     Route: 042
  6. VIT D [Concomitant]
     Active Substance: VITAMIN D NOS
  7. BIOTAB [Concomitant]
  8. DULERA [Concomitant]
     Active Substance: FORMOTEROL FUMARATE DIHYDRATE\MOMETASONE FUROATE
  9. NEBULIZER [Concomitant]
     Active Substance: DEVICE
  10. ALBUTERAL [Concomitant]
     Active Substance: ALBUTEROL
  11. BASGLAR [Concomitant]
  12. CLOBETASOL [Concomitant]
     Active Substance: CLOBETASOL
  13. PENCILLIN [Concomitant]
     Active Substance: PENICILLIN
  14. SPIRIVA [Concomitant]
     Active Substance: TIOTROPIUM BROMIDE MONOHYDRATE
  15. SOIRONOLACTONE [Concomitant]
  16. PROAIR HFA [Concomitant]
     Active Substance: ALBUTEROL SULFATE
  17. ACMPELIA [Concomitant]
  18. LYRICA [Concomitant]
     Active Substance: PREGABALIN
  19. BOOST OXYGEN [Concomitant]
  20. POTASSIUM [Concomitant]
     Active Substance: POTASSIUM

REACTIONS (8)
  - Temporomandibular joint syndrome [None]
  - Musculoskeletal pain [None]
  - Iliotibial band syndrome [None]
  - Pain in jaw [None]
  - Pain [None]
  - Arthralgia [None]
  - Pain in extremity [None]
  - Ear infection [None]

NARRATIVE: CASE EVENT DATE: 20190213
